FAERS Safety Report 11614898 (Version 2)
Quarter: 2015Q4

REPORT INFORMATION
  Report Type: Report from Study
  Country: US (occurrence: US)
  Receive Date: 20151009
  Receipt Date: 20151013
  Transmission Date: 20160304
  Serious: No
  Sender: FDA-Public Use
  Company Number: US-ASTRAZENECA-2015SE22638

PATIENT
  Age: 84 Year
  Sex: Female

DRUGS (13)
  1. CRESTOR [Suspect]
     Active Substance: ROSUVASTATIN CALCIUM
     Indication: BLOOD CHOLESTEROL INCREASED
     Route: 048
     Dates: start: 2014
  2. GABAPENTIN. [Concomitant]
     Active Substance: GABAPENTIN
  3. CALCIUM [Concomitant]
     Active Substance: CALCIUM
  4. ASPIRIN. [Concomitant]
     Active Substance: ASPIRIN
  5. BRILINTA [Suspect]
     Active Substance: TICAGRELOR
     Indication: ACUTE CORONARY SYNDROME
     Route: 048
  6. FISH OIL [Concomitant]
     Active Substance: FISH OIL
  7. MULTI VITAMIN [Concomitant]
     Active Substance: VITAMINS
  8. LISINOPRIL. [Suspect]
     Active Substance: LISINOPRIL
     Indication: HYPERTENSION
     Route: 048
     Dates: start: 201502
  9. POTASSIUM [Concomitant]
     Active Substance: POTASSIUM
  10. LASIX [Concomitant]
     Active Substance: FUROSEMIDE
  11. CRESTOR [Suspect]
     Active Substance: ROSUVASTATIN CALCIUM
     Indication: BLOOD CHOLESTEROL INCREASED
     Route: 048
  12. LEVOTHYROXINE. [Concomitant]
     Active Substance: LEVOTHYROXINE
  13. VITAMIN D3 [Concomitant]
     Active Substance: CHOLECALCIFEROL

REACTIONS (4)
  - Mental impairment [Unknown]
  - Hypertension [Unknown]
  - Thyroid disorder [Unknown]
  - Malaise [Unknown]

NARRATIVE: CASE EVENT DATE: 2014
